FAERS Safety Report 7883883-2 (Version None)
Quarter: 2011Q4

REPORT INFORMATION
  Report Type: 
  Country: None (occurrence: None)
  Receive Date: 20111102
  Receipt Date: 20111025
  Transmission Date: 20120403
  Serious: Yes (Other)
  Sender: FDA-Public Use
  Company Number: US-PFIZER INC-2011261463

PATIENT
  Sex: Female
  Weight: 61.678 kg

DRUGS (6)
  1. COZAAR [Concomitant]
     Indication: HYPERTENSION
     Dosage: 50 MG, DAILY
  2. ZITHROMAX [Suspect]
     Indication: INCREASED UPPER AIRWAY SECRETION
     Dosage: 250 MG, DAILY
     Dates: start: 20110101, end: 20110101
  3. MEDROL [Suspect]
     Indication: INCREASED UPPER AIRWAY SECRETION
  4. MEDROL [Suspect]
     Indication: COUGH
     Dosage: 4 MG, UNK
     Dates: start: 20110101, end: 20110101
  5. ZITHROMAX [Suspect]
     Indication: COUGH
     Dosage: 250 MG, 2X/DAY
     Dates: start: 20110101, end: 20110101
  6. CLIMARA [Suspect]
     Indication: STEROID THERAPY
     Dosage: 0.375 MG, 2X/WEEK
     Route: 062
     Dates: start: 20110101, end: 20111003

REACTIONS (7)
  - ASTHMA [None]
  - DYSPHAGIA [None]
  - DYSPHONIA [None]
  - DRY THROAT [None]
  - NASOPHARYNGITIS [None]
  - UPPER-AIRWAY COUGH SYNDROME [None]
  - INSOMNIA [None]
